FAERS Safety Report 16673414 (Version 2)
Quarter: 2019Q3

REPORT INFORMATION
  Report Type: Spontaneous
  Country: JP (occurrence: JP)
  Receive Date: 20190806
  Receipt Date: 20190829
  Transmission Date: 20191004
  Serious: Yes (Hospitalization)
  Sender: FDA-Public Use
  Company Number: JP-ACTELION-A-CH2019-193794

PATIENT
  Age: 21 Year
  Sex: Female

DRUGS (17)
  1. STERICLON [Concomitant]
     Active Substance: CHLORHEXIDINE GLUCONATE
  2. SPIRONOLACTONE. [Concomitant]
     Active Substance: SPIRONOLACTONE
  3. SAMSCA [Concomitant]
     Active Substance: TOLVAPTAN
  4. ADCIRCA [Concomitant]
     Active Substance: TADALAFIL
  5. LUNESTA [Concomitant]
     Active Substance: ESZOPICLONE
  6. DOMPERIDONE [Concomitant]
     Active Substance: DOMPERIDONE
  7. EPOPROSTENOL ACT [Suspect]
     Active Substance: EPOPROSTENOL
     Dosage: 14.7 NG/KG, PER MIN
     Route: 042
  8. BELSOMRA [Concomitant]
     Active Substance: SUVOREXANT
  9. RINDERON V [Concomitant]
     Active Substance: BETAMETHASONE VALERATE
  10. NATRIX [Concomitant]
     Active Substance: INDAPAMIDE
  11. CALONAL [Concomitant]
     Active Substance: ACETAMINOPHEN
  12. EPOPROSTENOL ACT [Suspect]
     Active Substance: EPOPROSTENOL
     Indication: PULMONARY ARTERIAL HYPERTENSION
     Dosage: UNK
     Route: 042
     Dates: start: 20190111
  13. DIART [Concomitant]
     Active Substance: AZOSEMIDE
  14. EPOPROSTENOL ACT [Suspect]
     Active Substance: EPOPROSTENOL
     Dosage: 18.8 NG/KG, PER MIN
     Route: 042
  15. OPSUMIT [Concomitant]
     Active Substance: MACITENTAN
  16. ABILIFY [Concomitant]
     Active Substance: ARIPIPRAZOLE
  17. MAGNESIUM OXIDE. [Concomitant]
     Active Substance: MAGNESIUM OXIDE

REACTIONS (7)
  - Blood potassium decreased [Recovered/Resolved]
  - Nausea [Recovered/Resolved]
  - Abdominal pain [Recovered/Resolved]
  - Dehydration [Recovered/Resolved]
  - Vomiting [Recovered/Resolved]
  - Diarrhoea [Recovered/Resolved]
  - Acute kidney injury [Recovered/Resolved]

NARRATIVE: CASE EVENT DATE: 20190216
